FAERS Safety Report 4723738-5 (Version None)
Quarter: 2005Q3

REPORT INFORMATION
  Report Type: 
  Country: None (occurrence: None)
  Receive Date: 20050725
  Receipt Date: 20050620
  Transmission Date: 20060218
  Serious: Yes (Hospitalization)
  Sender: FDA-Public Use
  Company Number: IN-BRISTOL-MYERS SQUIBB COMPANY-13008990

PATIENT
  Age: 33 Year
  Sex: Male

DRUGS (7)
  1. MEGACE [Suspect]
     Indication: HIV WASTING SYNDROME
     Route: 048
     Dates: start: 20050506, end: 20050506
  2. STAVUDINE [Concomitant]
     Indication: HIV INFECTION
     Dates: start: 20041028
  3. LAMIVUDINE [Concomitant]
     Indication: HIV INFECTION
     Dates: start: 20041028
  4. NEVIRAPINE [Concomitant]
     Indication: HIV INFECTION
     Dates: start: 20041028
  5. SPIRONOLACTONE [Concomitant]
     Indication: CARDIAC FAILURE CONGESTIVE
     Dates: start: 20050326, end: 20050417
  6. FRUSEMIDE [Concomitant]
     Indication: CARDIAC FAILURE CONGESTIVE
     Dates: start: 20050326, end: 20050417
  7. PREDNISOLONE [Concomitant]
     Indication: ADRENAL INSUFFICIENCY
     Dates: start: 20050516

REACTIONS (6)
  - CARDIAC FAILURE HIGH OUTPUT [None]
  - CARDIAC MURMUR [None]
  - MYALGIA [None]
  - OEDEMA PERIPHERAL [None]
  - PYREXIA [None]
  - VENOUS PRESSURE JUGULAR INCREASED [None]
